FAERS Safety Report 14900248 (Version 2)
Quarter: 2019Q1

REPORT INFORMATION
  Report Type: Spontaneous
  Country: US (occurrence: US)
  Receive Date: 20180516
  Receipt Date: 20190118
  Transmission Date: 20190417
  Serious: Yes (Other)
  Sender: FDA-Public Use
  Company Number: US-ASTRAZENECA-2018SE59756

PATIENT
  Sex: Female
  Weight: 71.7 kg

DRUGS (23)
  1. FENOFIBRATE. [Concomitant]
     Active Substance: FENOFIBRATE
     Indication: BLOOD TRIGLYCERIDES
  2. CITALOPRAM [Concomitant]
     Active Substance: CITALOPRAM HYDROBROMIDE
     Indication: FIBROMYALGIA
  3. CYCLOBENZAPRINE. [Concomitant]
     Active Substance: CYCLOBENZAPRINE
     Indication: FIBROMYALGIA
  4. DIPHENHYDRAMINE. [Concomitant]
     Active Substance: DIPHENHYDRAMINE
     Indication: PRURITUS
     Dates: start: 2016
  5. TRAMADOL. [Concomitant]
     Active Substance: TRAMADOL
     Indication: PAIN
     Dates: start: 2017
  6. ROLAIDS [Concomitant]
     Active Substance: CALCIUM CARBONATE\MAGNESIUM HYDROXIDE
     Dosage: AS NEEDED
  7. METFORMIN [Concomitant]
     Active Substance: METFORMIN HYDROCHLORIDE
     Indication: DIABETES MELLITUS
  8. DESMOPRESSIN [Concomitant]
     Active Substance: DESMOPRESSIN
     Indication: DIABETES MELLITUS
  9. GABAPENTIN. [Concomitant]
     Active Substance: GABAPENTIN
     Indication: PAIN
  10. TUMS [Concomitant]
     Active Substance: CALCIUM CARBONATE
     Dosage: AS NEEDED
  11. DEXILANT [Suspect]
     Active Substance: DEXLANSOPRAZOLE
     Indication: GASTROOESOPHAGEAL REFLUX DISEASE
     Route: 065
     Dates: start: 201408
  12. VESICARE [Concomitant]
     Active Substance: SOLIFENACIN SUCCINATE
     Indication: HYPERTONIC BLADDER
  13. ATORVASTATIN [Concomitant]
     Active Substance: ATORVASTATIN
     Indication: BLOOD CHOLESTEROL
  14. VITAMIN B12 [Concomitant]
     Active Substance: CYANOCOBALAMIN
     Indication: ANAEMIA
  15. NEXIUM [Suspect]
     Active Substance: ESOMEPRAZOLE MAGNESIUM
     Indication: GASTROOESOPHAGEAL REFLUX DISEASE
     Route: 048
     Dates: start: 200803, end: 201408
  16. LOVASTATIN. [Concomitant]
     Active Substance: LOVASTATIN
     Indication: BLOOD CHOLESTEROL
  17. CARVEDILOL. [Concomitant]
     Active Substance: CARVEDILOL
     Indication: BLOOD PRESSURE ABNORMAL
     Dates: start: 201608
  18. VASCEPA [Concomitant]
     Active Substance: ICOSAPENT ETHYL
     Indication: BLOOD CHOLESTEROL
  19. DULOXETINE. [Concomitant]
     Active Substance: DULOXETINE
     Indication: NERVE INJURY
  20. OMEGA 3 [Concomitant]
     Active Substance: OMEGA-3 FATTY ACIDS
  21. BIOTIN [Concomitant]
     Active Substance: BIOTIN
  22. RANITIDINE. [Concomitant]
     Active Substance: RANITIDINE
     Dates: start: 2015
  23. NEXIUM [Suspect]
     Active Substance: ESOMEPRAZOLE MAGNESIUM
     Indication: GASTROOESOPHAGEAL REFLUX DISEASE
     Route: 048
     Dates: start: 200803, end: 2014

REACTIONS (1)
  - Chronic kidney disease [Not Recovered/Not Resolved]
